FAERS Safety Report 7950444-6 (Version None)
Quarter: 2011Q4

REPORT INFORMATION
  Report Type: 
  Country: None (occurrence: None)
  Receive Date: 20111130
  Receipt Date: 20111116
  Transmission Date: 20120403
  Serious: Yes (Hospitalization)
  Sender: FDA-Public Use
  Company Number: US-MYLANLABS-2011S1024174

PATIENT
  Age: 32 Year
  Sex: Female

DRUGS (3)
  1. DIAZEPAM [Interacting]
     Dosage: 5 MG/H
     Route: 041
  2. HYDROXYCHLOROQUINE SULFATE [Suspect]
     Indication: SUICIDE ATTEMPT
     Route: 048
  3. DIAZEPAM [Interacting]
     Dosage: 140MG
     Route: 040

REACTIONS (7)
  - INTENTIONAL OVERDOSE [None]
  - DRUG RESISTANCE [None]
  - ELECTROCARDIOGRAM ABNORMAL [None]
  - ELECTROLYTE IMBALANCE [None]
  - DRUG INTERACTION [None]
  - HYPOTENSION [None]
  - SUICIDE ATTEMPT [None]
